FAERS Safety Report 23607477 (Version 1)
Quarter: 2024Q1

REPORT INFORMATION
  Report Type: Spontaneous
  Country: US (occurrence: US)
  Receive Date: 20240307
  Receipt Date: 20240307
  Transmission Date: 20240409
  Serious: No
  Sender: FDA-Public Use
  Company Number: US-GILEAD-2024-0664693

PATIENT
  Age: 64 Year
  Sex: Male

DRUGS (2)
  1. LENACAPAVIR [Suspect]
     Active Substance: LENACAPAVIR
     Indication: HIV infection
     Dosage: 2 DOSAGE FORM 1 TIME A DAY ON DAY 1 AND DAY 2
     Route: 048
     Dates: start: 202402
  2. LENACAPAVIR [Suspect]
     Active Substance: LENACAPAVIR
     Dosage: ONON DAY 1 THEN EVERY 6 MONTHS
     Route: 058
     Dates: start: 202402

REACTIONS (1)
  - Skin disorder [Not Recovered/Not Resolved]
